FAERS Safety Report 4425223-7 (Version None)
Quarter: 2004Q3

REPORT INFORMATION
  Report Type: 
  Country: None (occurrence: None)
  Receive Date: 20040813
  Receipt Date: 20040803
  Transmission Date: 20050211
  Serious: Yes (Hospitalization)
  Sender: FDA-Public Use
  Company Number: GB-JNJFOC-20040705319

PATIENT
  Sex: Female

DRUGS (13)
  1. REMICADE [Suspect]
     Indication: RHEUMATOID ARTHRITIS
     Route: 042
  2. PREDNISOLONE [Concomitant]
  3. ARTHROTEC [Concomitant]
  4. ARTHROTEC [Concomitant]
  5. SOTALOL HCL [Concomitant]
  6. ASPIRIN [Concomitant]
  7. TRAMADOL HCL [Concomitant]
  8. SEVREDOL [Concomitant]
  9. RALOXIFEN [Concomitant]
  10. METHOTREXATE [Concomitant]
  11. FOLIC ACID [Concomitant]
  12. FOSAMAX [Concomitant]
  13. BISOPROLOL FUMARATE [Concomitant]

REACTIONS (2)
  - ACUTE LEFT VENTRICULAR FAILURE [None]
  - LOWER RESPIRATORY TRACT INFECTION [None]
